FAERS Safety Report 23918619 (Version 2)
Quarter: 2024Q2

REPORT INFORMATION
  Report Type: Spontaneous
  Country: DE (occurrence: DE)
  Receive Date: 20240530
  Receipt Date: 20240617
  Transmission Date: 20240716
  Serious: Yes (Other)
  Sender: FDA-Public Use
  Company Number: DE-AMGEN-DEUSP2024104065

PATIENT
  Sex: Male

DRUGS (2)
  1. OTEZLA [Suspect]
     Active Substance: APREMILAST
     Indication: Product used for unknown indication
     Dosage: STARTER PACK
     Route: 065
  2. OTEZLA [Suspect]
     Active Substance: APREMILAST
     Dosage: 30 MILLIGRAM, BID
     Route: 065

REACTIONS (8)
  - Mental impairment [Unknown]
  - Abdominal pain upper [Unknown]
  - Diarrhoea [Unknown]
  - Weight decreased [Unknown]
  - Back pain [Unknown]
  - Headache [Unknown]
  - Listless [Unknown]
  - Fatigue [Unknown]
